FAERS Safety Report 19468768 (Version 2)
Quarter: 2021Q3

REPORT INFORMATION
  Report Type: Spontaneous
  Country: IT (occurrence: IT)
  Receive Date: 20210628
  Receipt Date: 20210727
  Transmission Date: 20211014
  Serious: Yes (Hospitalization, Other)
  Sender: FDA-Public Use
  Company Number: IT-INCYTE CORPORATION-2021IN005422

PATIENT

DRUGS (1)
  1. JAKAVI [Suspect]
     Active Substance: RUXOLITINIB
     Indication: MYELOFIBROSIS
     Dosage: 15 MG, BID
     Route: 065
     Dates: start: 20190118

REACTIONS (11)
  - Mobility decreased [Unknown]
  - Colon cancer metastatic [Unknown]
  - Intestinal stenosis [Unknown]
  - Intestinal obstruction [Unknown]
  - Anaemia [Unknown]
  - Metastases to liver [Unknown]
  - Intestinal perforation [Unknown]
  - Depression [Unknown]
  - Constipation [Unknown]
  - Hepatic lesion [Unknown]
  - Blood bilirubin increased [Unknown]
